FAERS Safety Report 8383151-9 (Version None)
Quarter: 2012Q2

REPORT INFORMATION
  Report Type: 
  Country: None (occurrence: None)
  Receive Date: 20120522
  Receipt Date: 20120507
  Transmission Date: 20120825
  Serious: Yes (Other)
  Sender: FDA-Public Use
  Company Number: 2012P1022208

PATIENT
  Age: 67 Year
  Sex: Male

DRUGS (2)
  1. DESOXIMETASONE [Suspect]
     Indication: HAEMORRHOID OPERATION
     Dosage: BID;PRN;TOP
     Route: 061
     Dates: start: 20030101
  2. DESOXIMETASONE [Suspect]
     Indication: POST PROCEDURAL INFECTION
     Dosage: BID;PRN;TOP
     Route: 061
     Dates: start: 20030101

REACTIONS (8)
  - PRURITUS [None]
  - APHTHOUS STOMATITIS [None]
  - INCORRECT ROUTE OF DRUG ADMINISTRATION [None]
  - DANDRUFF [None]
  - OFF LABEL USE [None]
  - MEDICAL DEVICE IMPLANTATION [None]
  - TINEA PEDIS [None]
  - SKIN EXFOLIATION [None]
